FAERS Safety Report 16490653 (Version 1)
Quarter: 2019Q2

REPORT INFORMATION
  Report Type: Spontaneous
  Country: CH (occurrence: CH)
  Receive Date: 20190628
  Receipt Date: 20190628
  Transmission Date: 20190711
  Serious: Yes (Life-Threatening)
  Sender: FDA-Public Use
  Company Number: CH-ASTRAZENECA-2019SE92071

PATIENT
  Age: 20654 Day
  Sex: Male

DRUGS (33)
  1. ISONIAZIDE [Suspect]
     Active Substance: ISONIAZID
     Route: 048
     Dates: start: 20190429
  2. PREDNISONE. [Suspect]
     Active Substance: PREDNISONE
     Route: 048
     Dates: start: 20190426, end: 20190611
  3. PREDNISONE. [Suspect]
     Active Substance: PREDNISONE
     Dosage: UNKNOWN DOSE DAILY
     Route: 048
     Dates: start: 20190614
  4. HALDOL [Suspect]
     Active Substance: HALOPERIDOL
     Route: 048
     Dates: start: 20190510
  5. HALDOL [Suspect]
     Active Substance: HALOPERIDOL
     Dosage: 0.5 MG, MAX 1X/D ; AS NECESSARY
     Route: 048
     Dates: start: 20190510
  6. TEMESTA EXPIDET [Suspect]
     Active Substance: LORAZEPAM
     Route: 048
     Dates: start: 20190515
  7. IMODIUM [Concomitant]
     Active Substance: LOPERAMIDE HYDROCHLORIDE
     Dosage: AS NECESSARY
  8. TORASEMIDE [Suspect]
     Active Substance: TORSEMIDE
     Route: 048
     Dates: start: 20190426
  9. INSULATARD HM [Concomitant]
     Active Substance: INSULIN HUMAN
  10. ARANESP [Concomitant]
     Active Substance: DARBEPOETIN ALFA
  11. CALCIUM CARBONATE. [Concomitant]
     Active Substance: CALCIUM CARBONATE
  12. SOLIAN [Concomitant]
     Active Substance: AMISULPRIDE
  13. ZOLPIDEM [Concomitant]
     Active Substance: ZOLPIDEM\ZOLPIDEM TARTRATE
  14. RIFAMPICIN [Suspect]
     Active Substance: RIFAMPIN
     Route: 048
     Dates: start: 20190426
  15. PREDNISONE. [Suspect]
     Active Substance: PREDNISONE
     Route: 048
     Dates: start: 20190611, end: 20190614
  16. TEMESTA EXPIDET [Suspect]
     Active Substance: LORAZEPAM
     Dosage: AS NECESSARY
     Route: 048
     Dates: start: 20190515
  17. CALCIMAGON D3 [Concomitant]
     Active Substance: CALCIUM\CHOLECALCIFEROL
  18. DAFALGAN [Concomitant]
     Active Substance: ACETAMINOPHEN
     Dosage: AS NECESSARY
  19. VITAMIN B6 [Concomitant]
     Active Substance: PYRIDOXINE HYDROCHLORIDE
  20. INSULIN [Concomitant]
     Active Substance: INSULIN NOS
     Dosage: AS NECESSARY
  21. AVALOX [Suspect]
     Active Substance: MOXIFLOXACIN HYDROCHLORIDE
     Route: 048
     Dates: start: 20190426
  22. COVERSUM N [Suspect]
     Active Substance: PERINDOPRIL
     Route: 048
     Dates: start: 20190507
  23. TEMGESIC [Suspect]
     Active Substance: BUPRENORPHINE HYDROCHLORIDE
     Dosage: 0.1 MG, 3X/D MAX
     Route: 060
     Dates: start: 20190519
  24. NEPHROTRANS [Concomitant]
     Active Substance: SODIUM BICARBONATE
  25. ACIDUM FOLICUM [Concomitant]
     Active Substance: FOLIC ACID
  26. NEXIUM [Suspect]
     Active Substance: ESOMEPRAZOLE MAGNESIUM
     Route: 042
     Dates: start: 20190507
  27. TEMGESIC [Suspect]
     Active Substance: BUPRENORPHINE HYDROCHLORIDE
     Dosage: 0.1 MG, 3X/D MAX ; AS NECESSARY
     Route: 060
     Dates: start: 20190519
  28. TEMESTA EXPIDET [Suspect]
     Active Substance: LORAZEPAM
     Route: 048
     Dates: start: 20190515
  29. TRITTICO [Concomitant]
     Active Substance: TRAZODONE HYDROCHLORIDE
  30. CREON [Concomitant]
     Active Substance: PANCRELIPASE AMYLASE\PANCRELIPASE LIPASE\PANCRELIPASE PROTEASE
  31. BIOFLORINA [Concomitant]
  32. MYAMBUTOL [Suspect]
     Active Substance: ETHAMBUTOL HYDROCHLORIDE
     Route: 048
     Dates: start: 20190426
  33. BECOZYME [Concomitant]
     Active Substance: VITAMINS

REACTIONS (1)
  - Metabolic acidosis [Not Recovered/Not Resolved]

NARRATIVE: CASE EVENT DATE: 20190520
